FAERS Safety Report 18721291 (Version 1)
Quarter: 2021Q1

REPORT INFORMATION
  Report Type: Spontaneous
  Country: IT (occurrence: IT)
  Receive Date: 20210109
  Receipt Date: 20210109
  Transmission Date: 20210419
  Serious: Yes (Hospitalization)
  Sender: FDA-Public Use
  Company Number: NVSC2021IT000695

PATIENT
  Age: 29 Year
  Sex: Female

DRUGS (3)
  1. LAMOTRIGINE. [Suspect]
     Active Substance: LAMOTRIGINE
     Indication: DRUG ABUSE
     Dosage: 700 MG TOTAL
     Route: 048
     Dates: start: 20201122, end: 20201122
  2. EFEXOR [Suspect]
     Active Substance: VENLAFAXINE HYDROCHLORIDE
     Indication: DRUG ABUSE
     Dosage: 75 MG TOTAL
     Route: 048
     Dates: start: 20201122, end: 20201122
  3. DALMADORM [Suspect]
     Active Substance: FLURAZEPAM HYDROCHLORIDE
     Indication: DRUG ABUSE
     Dosage: 300 MG TOTAL
     Route: 048
     Dates: start: 20201122, end: 20201122

REACTIONS (4)
  - Respiratory rate increased [Unknown]
  - Sopor [Unknown]
  - Vomiting [Unknown]
  - Drug abuse [Unknown]

NARRATIVE: CASE EVENT DATE: 20201122
